FAERS Safety Report 21461168 (Version 2)
Quarter: 2022Q4

REPORT INFORMATION
  Report Type: Report from Study
  Country: JP (occurrence: JP)
  Receive Date: 20221015
  Receipt Date: 20221121
  Transmission Date: 20230113
  Serious: Yes (Death, Hospitalization, Other)
  Sender: FDA-Public Use
  Company Number: JP-TAKEDA-2022TJP075357

PATIENT
  Age: 72 Year
  Sex: Male
  Weight: 88.9 kg

DRUGS (8)
  1. LEUPLIN [Suspect]
     Active Substance: LEUPROLIDE ACETATE
     Indication: Bulbospinal muscular atrophy congenital
     Dosage: 11.25 MILLIGRAM, Q3MONTHS
     Route: 058
     Dates: start: 20200709, end: 20200709
  2. HERBALS [Concomitant]
     Active Substance: HERBALS
     Indication: Abdominal distension
     Dosage: 7.5 GRAM
     Route: 065
     Dates: end: 20200812
  3. ERYTHROCIN [Concomitant]
     Active Substance: ERYTHROMYCIN LACTOBIONATE
     Indication: Bronchitis chronic
     Dosage: 300 MILLIGRAM
     Route: 065
     Dates: end: 20200812
  4. MAGNESIUM OXIDE [Concomitant]
     Active Substance: MAGNESIUM OXIDE
     Indication: Constipation
     Dosage: 1980 MILLIGRAM
     Route: 065
     Dates: end: 20200812
  5. LANSOPRAZOLE [Concomitant]
     Active Substance: LANSOPRAZOLE
     Indication: Gastrooesophageal reflux disease
     Dosage: 15 MILLIGRAM
     Route: 065
     Dates: end: 20200812
  6. AMBROXOL HYDROCHLORIDE [Concomitant]
     Active Substance: AMBROXOL HYDROCHLORIDE
     Indication: Bronchitis chronic
     Dosage: 45 MILLIGRAM
     Route: 065
     Dates: end: 20200812
  7. DIMETHICONE [Concomitant]
     Active Substance: DIMETHICONE
     Indication: Flatulence
     Dosage: 240 MILLIGRAM
     Route: 065
     Dates: end: 20200812
  8. SODIUM FERROUS CITRATE [Concomitant]
     Active Substance: SODIUM FERROUS CITRATE
     Indication: Iron deficiency anaemia
     Dosage: 100 MILLIGRAM
     Route: 065
     Dates: end: 20200812

REACTIONS (1)
  - Pneumonia aspiration [Fatal]

NARRATIVE: CASE EVENT DATE: 20200812
